FAERS Safety Report 18530878 (Version 2)
Quarter: 2020Q4

REPORT INFORMATION
  Report Type: Spontaneous
  Country: PL (occurrence: PL)
  Receive Date: 20201121
  Receipt Date: 20201130
  Transmission Date: 20210114
  Serious: Yes (Hospitalization, Other)
  Sender: FDA-Public Use
  Company Number: NVSC2020PL306905

PATIENT
  Age: 61 Year
  Sex: Male
  Weight: 100 kg

DRUGS (23)
  1. TORASEMIDE [Suspect]
     Active Substance: TORSEMIDE
     Indication: PRODUCT USED FOR UNKNOWN INDICATION
     Dosage: UNK UNK, QD (BID (20-10-0))
     Route: 065
  2. TORASEMIDE [Suspect]
     Active Substance: TORSEMIDE
     Dosage: UNK UNK, QD (BID (DIURETICS HAS BEEN REDUCED, 10-10-0))
     Route: 065
  3. PANTOPRAZOLE [Suspect]
     Active Substance: PANTOPRAZOLE
     Indication: PRODUCT USED FOR UNKNOWN INDICATION
     Dosage: 20 MG, QD (20 MILLIGRAM, QD)
     Route: 065
  4. VALSARTAN. [Suspect]
     Active Substance: VALSARTAN
     Dosage: 160 MILLIGRAM, QD
     Route: 065
  5. METOPROLOL. [Suspect]
     Active Substance: METOPROLOL
     Indication: PRODUCT USED FOR UNKNOWN INDICATION
     Dosage: 47.5 MG, QD (47.5 MILLIGRAM, QD)
     Route: 065
  6. SACUBITRIL,VALSARTAN [Suspect]
     Active Substance: SACUBITRIL\VALSARTAN
     Indication: PRODUCT USED FOR UNKNOWN INDICATION
     Dosage: 400 MG, QD (200 MG, BID (97/103))
     Route: 065
  7. SACUBITRIL,VALSARTAN [Suspect]
     Active Substance: SACUBITRIL\VALSARTAN
     Dosage: 100 MG, QD (50 MG, BID (24/26 MG) )
     Route: 065
  8. SACUBITRIL,VALSARTAN [Suspect]
     Active Substance: SACUBITRIL\VALSARTAN
     Dosage: 200 MG, QD (100 MG, BID (49/51 MG))
     Route: 065
  9. VALSARTAN. [Suspect]
     Active Substance: VALSARTAN
     Indication: PRODUCT USED FOR UNKNOWN INDICATION
     Dosage: 160 MG, QD (160 MILLIGRAM, QD)
     Route: 065
  10. EPLERENONE. [Suspect]
     Active Substance: EPLERENONE
     Indication: PRODUCT USED FOR UNKNOWN INDICATION
     Dosage: 50 MG, QD (TREATMENT DISCONTINUED)
     Route: 065
  11. WARFARIN [Suspect]
     Active Substance: WARFARIN
     Indication: PRODUCT USED FOR UNKNOWN INDICATION
     Dosage: UNK (AS PER INR)
     Route: 065
  12. POTASSIUM [Concomitant]
     Active Substance: POTASSIUM
     Indication: PRODUCT USED FOR UNKNOWN INDICATION
     Dosage: UNK
     Route: 065
  13. TORASEMIDE [Suspect]
     Active Substance: TORSEMIDE
     Dosage: 20 MG, QD (10 MILLIGRAM, BID)
     Route: 065
  14. TORASEMIDE [Suspect]
     Active Substance: TORSEMIDE
     Dosage: 10 MILLIGRAM, BID
     Route: 065
  15. APIXABAN [Suspect]
     Active Substance: APIXABAN
     Indication: PRODUCT USED FOR UNKNOWN INDICATION
     Dosage: UNK
     Route: 065
  16. SACUBITRIL,VALSARTAN [Suspect]
     Active Substance: SACUBITRIL\VALSARTAN
     Dosage: 200 MG, QD (100 MG, BID (49/51 MG))
     Route: 065
  17. AMIODARONE [Suspect]
     Active Substance: AMIODARONE
     Indication: PRODUCT USED FOR UNKNOWN INDICATION
     Dosage: 200 MG, QD (200 MILLIGRAM, QD)
     Route: 042
  18. TORASEMIDE [Suspect]
     Active Substance: TORSEMIDE
     Dosage: BID (DIURETICS HAS BEEN REDUCED, 10-10-0)
     Route: 065
  19. TORASEMIDE [Suspect]
     Active Substance: TORSEMIDE
     Dosage: BID (20-10-0)
     Route: 065
  20. ATORVASTATIN CALCIUM. [Suspect]
     Active Substance: ATORVASTATIN CALCIUM
     Indication: PRODUCT USED FOR UNKNOWN INDICATION
     Dosage: 20 MG, QD (20 MILLIGRAM, QD)
     Route: 065
  21. SACUBITRIL,VALSARTAN [Suspect]
     Active Substance: SACUBITRIL\VALSARTAN
     Dosage: 400 MG, QD (200 MG, BID (97/103))
     Route: 065
  22. RIVAROXABAN [Suspect]
     Active Substance: RIVAROXABAN
     Indication: PRODUCT USED FOR UNKNOWN INDICATION
     Dosage: 20 MG, QD (20 MILLIGRAM, QD)
     Route: 065
  23. EPLERENONE. [Suspect]
     Active Substance: EPLERENONE
     Dosage: 50 MG, QD (50 MILLIGRAM, QD)
     Route: 065

REACTIONS (11)
  - Glomerular filtration rate decreased [Unknown]
  - Off label use [Unknown]
  - Blood creatinine increased [Unknown]
  - Cardiac failure congestive [Unknown]
  - Inappropriate schedule of product administration [Unknown]
  - Heart rate increased [Recovered/Resolved]
  - Diarrhoea [Recovered/Resolved]
  - Weight increased [Unknown]
  - Oedema peripheral [Recovered/Resolved]
  - Aortic valve incompetence [Unknown]
  - Blood cholesterol increased [Unknown]
